FAERS Safety Report 11219918 (Version 5)
Quarter: 2015Q3

REPORT INFORMATION
  Report Type: Report from Study
  Country: GB (occurrence: GB)
  Receive Date: 20150625
  Receipt Date: 20150727
  Transmission Date: 20151125
  Serious: Yes (Hospitalization)
  Sender: FDA-Public Use
  Company Number: GB-JNJFOC-20150617126

PATIENT
  Age: 16 Year
  Sex: Female
  Weight: 84.4 kg

DRUGS (2)
  1. REMICADE [Suspect]
     Active Substance: INFLIXIMAB
     Indication: CROHN^S DISEASE
     Route: 042
     Dates: start: 20140121
  2. AZATHIOPRINE. [Concomitant]
     Active Substance: AZATHIOPRINE
     Route: 065

REACTIONS (1)
  - Crohn^s disease [Recovered/Resolved]

NARRATIVE: CASE EVENT DATE: 20141204
